FAERS Safety Report 7715198-7 (Version None)
Quarter: 2011Q3

REPORT INFORMATION
  Report Type: 
  Country: None (occurrence: None)
  Receive Date: 20110829
  Receipt Date: 20110819
  Transmission Date: 20111222
  Serious: Yes (Hospitalization)
  Sender: FDA-Public Use
  Company Number: PHHY2010AU25673

PATIENT
  Sex: Male

DRUGS (2)
  1. CLOZAPINE [Suspect]
     Dosage: 450 MG, UNK
     Dates: start: 20090713
  2. CLOZAPINE [Suspect]
     Dosage: 400 MG,
     Dates: start: 20050302

REACTIONS (1)
  - HIDRADENITIS [None]
